FAERS Safety Report 19253934 (Version 1)
Quarter: 2021Q2

REPORT INFORMATION
  Report Type: Spontaneous
  Country: US (occurrence: US)
  Receive Date: 20210513
  Receipt Date: 20210513
  Transmission Date: 20210717
  Serious: No
  Sender: FDA-Public Use
  Company Number: NVSC2021US101943

PATIENT
  Sex: Male

DRUGS (1)
  1. ZARXIO [Suspect]
     Active Substance: FILGRASTIM-SNDZ
     Indication: NEUROENDOCRINE TUMOUR
     Dosage: 480 MG (INJECTION)
     Route: 058

REACTIONS (2)
  - Back pain [Unknown]
  - Product use in unapproved indication [Unknown]
